FAERS Safety Report 24284415 (Version 1)
Quarter: 2024Q3

REPORT INFORMATION
  Report Type: Spontaneous
  Country: QA (occurrence: QA)
  Receive Date: 20240905
  Receipt Date: 20240905
  Transmission Date: 20241017
  Serious: No
  Sender: ALKEM
  Company Number: QA-ALKEM LABORATORIES LIMITED-QA-ALKEM-2024-17909

PATIENT
  Age: 55 Year
  Sex: Female

DRUGS (1)
  1. VANCOMYCIN [Suspect]
     Active Substance: VANCOMYCIN
     Indication: Bacillus infection
     Dosage: UNK
     Route: 065

REACTIONS (1)
  - Treatment failure [Unknown]
